FAERS Safety Report 9263328 (Version 1)
Quarter: 2013Q2

REPORT INFORMATION
  Report Type: Spontaneous
  Country: AU (occurrence: None)
  Receive Date: 20130426
  Receipt Date: 20130426
  Transmission Date: 20140414
  Serious: Yes (Hospitalization, Other)
  Sender: FDA-Public Use
  Company Number: AT-011393

PATIENT
  Age: 42 Year
  Sex: Female
  Weight: 59 kg

DRUGS (2)
  1. MENOTROPHIN [Suspect]
     Indication: IN VITRO FERTILISATION
     Route: 058
     Dates: start: 20130214, end: 20130222
  2. CETROTIDE [Suspect]
     Indication: IN VITRO FERTILISATION
     Dates: start: 20130215, end: 20130222

REACTIONS (3)
  - Ovarian hyperstimulation syndrome [None]
  - Pain [None]
  - Anuria [None]
